FAERS Safety Report 8512684-7 (Version None)
Quarter: 2012Q3

REPORT INFORMATION
  Report Type: 
  Country: None (occurrence: None)
  Receive Date: 20120716
  Receipt Date: 20120713
  Transmission Date: 20120928
  Serious: Yes (Other)
  Sender: FDA-Public Use
  Company Number: TR-PFIZER INC-2012169150

PATIENT
  Age: 43 Year
  Sex: Male

DRUGS (3)
  1. XANAX [Suspect]
     Dosage: UNK
     Route: 048
  2. XANAX [Suspect]
     Dosage: 10 X 1 MG
     Route: 048
     Dates: start: 20120713, end: 20120713
  3. XANAX [Suspect]
     Dosage: 8 X 1 MG
     Route: 048
     Dates: start: 20120712, end: 20120712

REACTIONS (14)
  - PSYCHOMOTOR RETARDATION [None]
  - DECREASED APPETITE [None]
  - DEPRESSION [None]
  - TREMOR [None]
  - FALL [None]
  - DRUG DEPENDENCE [None]
  - DRUG ABUSE [None]
  - SLEEP DISORDER [None]
  - OBSESSIVE-COMPULSIVE DISORDER [None]
  - PANIC ATTACK [None]
  - ALCOHOLISM [None]
  - DRUG INEFFECTIVE [None]
  - OVERDOSE [None]
  - FEELING ABNORMAL [None]
